FAERS Safety Report 4789542-7 (Version None)
Quarter: 2005Q4

REPORT INFORMATION
  Report Type: 
  Country: None (occurrence: None)
  Receive Date: 20051005
  Receipt Date: 20051005
  Transmission Date: 20060501
  Serious: Yes (Life-Threatening)
  Sender: FDA-Public Use
  Company Number: None

PATIENT
  Age: 47 Year
  Sex: Female

DRUGS (13)
  1. TACROLIMUS [Suspect]
     Indication: LUNG TRANSPLANT
     Dosage: 1 MG PO BID
     Route: 048
  2. ATROVENT [Concomitant]
  3. BACTRIM [Concomitant]
  4. HYDROCHLOROTHIAZIDE [Concomitant]
  5. IMURAN [Concomitant]
  6. MGO [Concomitant]
  7. FERROUS SULFATE TAB [Concomitant]
  8. MEDROXYPROGESTERONE [Concomitant]
  9. PERCOCET [Concomitant]
  10. PREDNISONE [Concomitant]
  11. PROZAC [Concomitant]
  12. RANITIDINE [Concomitant]
  13. ZITHROMAX [Concomitant]

REACTIONS (2)
  - BACK PAIN [None]
  - PAIN IN EXTREMITY [None]
